FAERS Safety Report 4353293-3 (Version None)
Quarter: 2004Q2

REPORT INFORMATION
  Report Type: 
  Country: None (occurrence: None)
  Receive Date: 20040504
  Receipt Date: 20040504
  Transmission Date: 20050107
  Serious: Yes (Disabling)
  Sender: FDA-Public Use
  Company Number: None

PATIENT
  Age: 49 Year
  Sex: Female
  Weight: 82.1011 kg

DRUGS (3)
  1. EFFEXOR [Suspect]
     Indication: ANXIETY DISORDER
     Dosage: 450 PER DAY
  2. EFFEXOR [Suspect]
     Indication: DEPRESSION
     Dosage: 450 PER DAY
  3. EFFEXOR [Suspect]
     Indication: PANIC DISORDER
     Dosage: 450 PER DAY

REACTIONS (14)
  - ANGER [None]
  - CRYING [None]
  - DEPRESSED MOOD [None]
  - DRUG EFFECT DECREASED [None]
  - FAMILY STRESS [None]
  - FEELING ABNORMAL [None]
  - IMPAIRED WORK ABILITY [None]
  - IRRITABILITY [None]
  - MENTAL DISORDER [None]
  - MIGRAINE [None]
  - NAUSEA [None]
  - NERVOUS SYSTEM DISORDER [None]
  - PARAESTHESIA [None]
  - THREAT OF REDUNDANCY [None]
